FAERS Safety Report 5341517-5 (Version None)
Quarter: 2007Q2

REPORT INFORMATION
  Report Type: 
  Country: None (occurrence: None)
  Receive Date: 20070529
  Receipt Date: 20070529
  Transmission Date: 20071010
  Serious: Yes (Hospitalization)
  Sender: FDA-Public Use
  Company Number: None

PATIENT
  Age: 65 Year
  Sex: Male
  Weight: 71 kg

DRUGS (5)
  1. VELCADE [Suspect]
     Indication: LYMPHOMA
     Dosage: 1.6 MG/M2 WEEKLY DAYS 1, 8, 15, 22
     Dates: start: 20070102, end: 20070509
  2. CYCLOPHOSPHAMIDE [Suspect]
     Dosage: 400 MG/M2 DAYS 1-4 PO
     Route: 048
     Dates: start: 20070102, end: 20070510
  3. RITUXIMAB [Suspect]
     Dosage: 375 MG/M2 DAYS 1, 8, 15, 22, IN CYCLE 1 IV
     Route: 042
     Dates: start: 20070102, end: 20070510
  4. DEXAMETHASONE 0.5MG TAB [Suspect]
     Dosage: 40 MG PO
     Route: 048
     Dates: start: 20070102, end: 20070510
  5. ASPIRIN [Concomitant]

REACTIONS (3)
  - CEREBROVASCULAR ACCIDENT [None]
  - FACIAL PALSY [None]
  - MUSCULAR WEAKNESS [None]
